FAERS Safety Report 23748076 (Version 1)
Quarter: 2024Q2

REPORT INFORMATION
  Report Type: Spontaneous
  Country: US (occurrence: US)
  Receive Date: 20240416
  Receipt Date: 20240416
  Transmission Date: 20240716
  Serious: No
  Sender: FDA-Public Use
  Company Number: US-INSUD PHARMA-2404US03042

PATIENT

DRUGS (13)
  1. PROGESTERONE [Suspect]
     Active Substance: PROGESTERONE
     Indication: Menopause
     Dosage: 200 MILLIGRAM, QD
     Route: 048
     Dates: start: 2024, end: 20240401
  2. PROGESTERONE [Suspect]
     Active Substance: PROGESTERONE
     Indication: Prophylaxis
     Dosage: 200 MILLIGRAM, QD
     Route: 048
     Dates: start: 2021, end: 2024
  3. ESTROGENS [Concomitant]
     Active Substance: ESTROGENS
     Dosage: 0.375 MILLIGRAM, PATCH TWICE WEEKLY
     Route: 062
  4. FLUOXETINE [Concomitant]
     Active Substance: FLUOXETINE HYDROCHLORIDE
     Dosage: 20 MILLIGRAM, QD
  5. LAMICTAL [Concomitant]
     Active Substance: LAMOTRIGINE
     Dosage: 200 MILLIGRAM
  6. WELLBUTRIN [Concomitant]
     Active Substance: BUPROPION HYDROCHLORIDE
     Dosage: 300 MILLIGRAM, QD
  7. PROPRANOLOL [Concomitant]
     Active Substance: PROPRANOLOL HYDROCHLORIDE
     Dosage: 60 MILLIGRAM
  8. VITAMINS NOS [Concomitant]
     Active Substance: VITAMINS
     Indication: Migraine prophylaxis
     Dosage: UNK
  9. INDOMETHACIN [Concomitant]
     Active Substance: INDOMETHACIN
     Dosage: 25 MILLIGRAM, BID
  10. ZYRTEC [Concomitant]
     Active Substance: CETIRIZINE HYDROCHLORIDE
     Dosage: 10 MILLIGRAM
  11. FROVA [Concomitant]
     Active Substance: FROVATRIPTAN SUCCINATE
     Indication: Migraine
     Dosage: 2.5 MILLIGRAM, PRN
  12. ESTRADIOL [Concomitant]
     Active Substance: ESTRADIOL
     Dosage: 0.1 PERCENT VAGINAL CREAM, 2X/WEEK
     Route: 067
  13. PROGESTERONE [Concomitant]
     Active Substance: PROGESTERONE
     Dosage: UNK

REACTIONS (6)
  - Heavy menstrual bleeding [Recovering/Resolving]
  - Dysmenorrhoea [Recovering/Resolving]
  - Migraine [Recovering/Resolving]
  - Suspected product quality issue [Unknown]
  - Poor quality product administered [Unknown]
  - Product odour abnormal [Unknown]

NARRATIVE: CASE EVENT DATE: 20240101
